FAERS Safety Report 9394172 (Version 2)
Quarter: 2013Q3

REPORT INFORMATION
  Report Type: Spontaneous
  Country: FR (occurrence: FR)
  Receive Date: 20130711
  Receipt Date: 20130726
  Transmission Date: 20140515
  Serious: Yes (Hospitalization)
  Sender: FDA-Public Use
  Company Number: FR-MERCK-1307FRA002402

PATIENT
  Age: 39 Year
  Sex: Female

DRUGS (4)
  1. AERIUS [Suspect]
     Indication: PRURITUS
     Dosage: UNK
     Route: 048
     Dates: start: 20130510, end: 20130525
  2. TOLEXINE [Suspect]
     Indication: PRURITUS
     Dosage: 100 MG, QD
     Route: 048
     Dates: start: 20130510, end: 20130525
  3. ROZEX (METRONIDAZOLE) [Suspect]
     Indication: PRURITUS
     Dosage: UNK
     Route: 061
     Dates: start: 20130510, end: 20130525
  4. FLIXOVATE [Suspect]
     Indication: PRURITUS
     Dosage: UNK
     Route: 061
     Dates: start: 20130510, end: 20130525

REACTIONS (1)
  - Neutropenia [Recovering/Resolving]
